FAERS Safety Report 6555330-4 (Version None)
Quarter: 2010Q1

REPORT INFORMATION
  Report Type: 
  Country: None (occurrence: None)
  Receive Date: 20100128
  Receipt Date: 20090520
  Transmission Date: 20100710
  Serious: No
  Sender: FDA-Public Use
  Company Number: A0787187A

PATIENT

DRUGS (2)
  1. WELLBUTRIN [Suspect]
     Indication: DRUG USE FOR UNKNOWN INDICATION
     Route: 048
  2. TOPAMAX [Concomitant]

REACTIONS (1)
  - DECREASED IMMUNE RESPONSIVENESS [None]
